FAERS Safety Report 6226499-6 (Version None)
Quarter: 2009Q2

REPORT INFORMATION
  Report Type: 
  Country: None (occurrence: None)
  Receive Date: 20090612
  Receipt Date: 20090603
  Transmission Date: 20091009
  Serious: Yes (Hospitalization)
  Sender: FDA-Public Use
  Company Number: KR-PFIZER INC-2009223736

PATIENT
  Age: 63 Year

DRUGS (9)
  1. SUNITINIB MALATE [Suspect]
     Indication: GASTROINTESTINAL STROMAL TUMOUR
     Dosage: 50 MG, EVERY DAY
     Dates: start: 20081216
  2. MAGNESIUM OXIDE [Concomitant]
     Dosage: 1000 MG, DAILY
     Dates: start: 20081216
  3. MOSAPRIDE CITRATE [Concomitant]
     Indication: DYSPEPSIA
     Dosage: 15 MG, DAILY
     Dates: start: 20081216
  4. MEGESTROL ACETATE [Concomitant]
     Indication: ANOREXIA
     Dosage: 20 ML, DAILY
     Dates: start: 20081216, end: 20090420
  5. DUPHALAC [Concomitant]
     Indication: CONSTIPATION
     Dosage: 20 ML, DAILY
     Dates: start: 20081216, end: 20090127
  6. FUROSEMIDE [Concomitant]
     Dosage: 40 MG, DAILY
     Dates: start: 20081218, end: 20090420
  7. SPIRONOLACTONE [Concomitant]
     Dosage: 25 MG, DAILY
     Dates: start: 20081219, end: 20090420
  8. EBASTINE [Concomitant]
     Indication: RASH
     Dosage: 10 MG, DAILY
     Dates: start: 20090105
  9. PREDNISOLONE [Concomitant]
     Indication: RASH
     Dosage: 5 MG, DAILY
     Dates: start: 20090105, end: 20090409

REACTIONS (1)
  - PNEUMONIA [None]
